FAERS Safety Report 11213358 (Version 1)
Quarter: 2015Q2

REPORT INFORMATION
  Report Type: Spontaneous
  Country: DE (occurrence: DE)
  Receive Date: 20150623
  Receipt Date: 20150623
  Transmission Date: 20150821
  Serious: Yes (Disabling)
  Sender: FDA-Public Use
  Company Number: GXKR2015DE002936

PATIENT
  Sex: Male
  Weight: 60 kg

DRUGS (1)
  1. LORANO AKUT [Suspect]
     Active Substance: LORATADINE
     Indication: SEASONAL ALLERGY
     Dosage: 1 DF, QHS
     Route: 048
     Dates: start: 20150513, end: 20150520

REACTIONS (2)
  - Gingival bleeding [Recovered/Resolved]
  - Epistaxis [Recovered/Resolved]
